FAERS Safety Report 24378161 (Version 1)
Quarter: 2024Q3

REPORT INFORMATION
  Report Type: Spontaneous
  Country: US (occurrence: None)
  Receive Date: 20240927
  Receipt Date: 20240927
  Transmission Date: 20241017
  Serious: Yes (Life-Threatening, Hospitalization, Disabling, Other)
  Sender: Public
  Company Number: None

PATIENT
  Sex: Female
  Weight: 72 kg

DRUGS (4)
  1. LAMOTRIGINE [Suspect]
     Active Substance: LAMOTRIGINE
     Indication: Epilepsy
     Dosage: ORAL
     Route: 048
  2. LACOSAMIDE [Suspect]
     Active Substance: LACOSAMIDE
  3. Temazepam 7 [Concomitant]
  4. KEPPRA [Suspect]
     Active Substance: LEVETIRACETAM

REACTIONS (6)
  - Wrong product administered [None]
  - Near death experience [None]
  - Fall [None]
  - Victim of abuse [None]
  - Refusal of treatment by patient [None]
  - Legal problem [None]
